FAERS Safety Report 7013480-2 (Version None)
Quarter: 2010Q3

REPORT INFORMATION
  Report Type: 
  Country: None (occurrence: None)
  Receive Date: 20100924
  Receipt Date: 20100920
  Transmission Date: 20110219
  Serious: No
  Sender: FDA-Public Use
  Company Number: US-PFIZER INC-2010119974

PATIENT
  Sex: Female
  Weight: 86.168 kg

DRUGS (10)
  1. AROMASIN [Suspect]
     Indication: BREAST CANCER
     Dosage: 25 MG, ONCE A DAY
     Route: 048
     Dates: start: 20100901
  2. METOPROLOL [Concomitant]
     Indication: HYPERTENSION
     Dosage: UNK, 2X/DAY
  3. SIMVASTATIN [Concomitant]
     Indication: BLOOD CHOLESTEROL INCREASED
     Dosage: 10 MG, UNK
  4. MULTI-VITAMINS [Concomitant]
     Dosage: UNK
  5. LOVAZA [Concomitant]
     Dosage: UNK
  6. VITAMIN D [Concomitant]
     Dosage: UNK
  7. COENZYME Q10 [Concomitant]
     Dosage: UNK
  8. CALCIUM [Concomitant]
     Dosage: UNK
  9. MAGNESIUM [Concomitant]
     Dosage: UNK
  10. GUANFACINE [Concomitant]
     Dosage: UNK, DAILY

REACTIONS (5)
  - DANDRUFF [None]
  - DRY SKIN [None]
  - FATIGUE [None]
  - PAIN OF SKIN [None]
  - PRURITUS [None]
